FAERS Safety Report 4716845-4 (Version None)
Quarter: 2005Q3

REPORT INFORMATION
  Report Type: 
  Country: None (occurrence: None)
  Receive Date: 20050719
  Receipt Date: 20050311
  Transmission Date: 20060218
  Serious: Yes (Hospitalization)
  Sender: FDA-Public Use
  Company Number: US-MERCK-0503USA02603

PATIENT
  Age: 74 Year
  Sex: Female
  Weight: 87 kg

DRUGS (10)
  1. VIOXX [Suspect]
     Indication: HIP ARTHROPLASTY
     Route: 048
     Dates: start: 20001001, end: 20040901
  2. VIOXX [Suspect]
     Indication: KNEE ARTHROPLASTY
     Route: 048
     Dates: start: 20001001, end: 20040901
  3. PROCARDIA [Concomitant]
     Route: 065
     Dates: start: 20000111
  4. ASPIRIN [Concomitant]
     Route: 065
  5. TYLENOL [Concomitant]
     Route: 065
  6. XALATAN [Concomitant]
     Route: 047
  7. CIPRO [Concomitant]
     Route: 065
  8. IRON (UNSPECIFIED) [Concomitant]
     Route: 065
  9. HYDROCODONE BITARTRATE [Concomitant]
     Route: 065
     Dates: start: 20020503, end: 20021010
  10. VITAMINS (UNSPECIFIED) [Concomitant]
     Route: 065

REACTIONS (3)
  - CEREBROVASCULAR ACCIDENT [None]
  - POST CONCUSSION SYNDROME [None]
  - RETINAL INFARCTION [None]
